FAERS Safety Report 22220794 (Version 1)
Quarter: 2023Q2

REPORT INFORMATION
  Report Type: Spontaneous
  Country: CN (occurrence: CN)
  Receive Date: 20230418
  Receipt Date: 20230418
  Transmission Date: 20230722
  Serious: Yes (Other)
  Sender: FDA-Public Use
  Company Number: CN-drreddys-LIT/CHN/23/0163771

PATIENT
  Age: 74 Year
  Sex: Male

DRUGS (3)
  1. ABIRATERONE [Suspect]
     Active Substance: ABIRATERONE
     Indication: Neuroendocrine carcinoma of prostate
     Dates: start: 2022
  2. ETOPOSIDE [Concomitant]
     Active Substance: ETOPOSIDE
     Indication: Neuroendocrine carcinoma
     Dosage: D1-14, Q3W
     Route: 048
  3. ETOPOSIDE [Concomitant]
     Active Substance: ETOPOSIDE
     Dosage: MAINTENANCE THERAPY WAS CONTINUED UNTIL JANUARY 2022

REACTIONS (1)
  - Neoplasm progression [Recovering/Resolving]
